FAERS Safety Report 21898271 (Version 1)
Quarter: 2023Q1

REPORT INFORMATION
  Report Type: Spontaneous
  Country: US (occurrence: None)
  Receive Date: 20230121
  Receipt Date: 20230121
  Transmission Date: 20230418
  Serious: Yes (Hospitalization)
  Sender: FDA-Public Use
  Company Number: None

PATIENT
  Sex: Female
  Weight: 11.8 kg

DRUGS (3)
  1. CARBOPLATIN [Suspect]
     Active Substance: CARBOPLATIN
     Dates: end: 20221231
  2. ETOPOSIDE [Suspect]
     Active Substance: ETOPOSIDE
     Dates: end: 20221231
  3. MELPHALAN [Suspect]
     Active Substance: MELPHALAN
     Dates: end: 20221230

REACTIONS (10)
  - Pericardial effusion [None]
  - Rhinovirus infection [None]
  - Stem cell transplant [None]
  - Pulmonary hypertension [None]
  - Respiratory syncytial virus infection [None]
  - Dehydration [None]
  - Pyrexia [None]
  - Right ventricular hypertension [None]
  - Right ventricular diastolic collapse [None]
  - Hypoxia [None]

NARRATIVE: CASE EVENT DATE: 20230117
